FAERS Safety Report 5935013-1 (Version None)
Quarter: 2008Q4

REPORT INFORMATION
  Report Type: 
  Country: None (occurrence: None)
  Receive Date: 20081014
  Receipt Date: 20080118
  Transmission Date: 20090506
  Serious: Yes (Death)
  Sender: FDA-Public Use
  Company Number: 2008S1000063

PATIENT
  Age: 50 Year
  Sex: Male
  Weight: 128.368 kg

DRUGS (10)
  1. DARVOCET-N 100 [Suspect]
     Indication: BACK PAIN
     Dosage: 100 MG;Q4H;PO
     Route: 048
     Dates: end: 20060101
  2. CARISOPRODOL [Suspect]
     Dates: end: 20060101
  3. CITALOPRAM HYDROBROMIDE [Suspect]
     Dates: end: 20060101
  4. OXAZEPAM [Suspect]
     Dates: end: 20060101
  5. VIOXX [Concomitant]
  6. ACE INHIBITOR [Concomitant]
  7. BETA-BLOCKER [Concomitant]
  8. GLUCOPHAGE [Concomitant]
  9. STATIN [Concomitant]
  10. NAPROXEN [Concomitant]

REACTIONS (1)
  - DRUG TOXICITY [None]
